FAERS Safety Report 22948550 (Version 3)
Quarter: 2025Q4

REPORT INFORMATION
  Report Type: Spontaneous
  Country: EU (occurrence: EU)
  Receive Date: 20230915
  Receipt Date: 20251111
  Transmission Date: 20260118
  Serious: Yes (Other)
  Sender: NOVARTIS
  Company Number: EU-002147023-NVSC2023IT165251

PATIENT
  Sex: Female

DRUGS (1)
  1. ASCIMINIB [Suspect]
     Active Substance: ASCIMINIB
     Indication: Paternal exposure during pregnancy
     Dosage: EXPOSURE VIA PARTNER (PARTNER^S DOSE: 40 MG, BID)
     Route: 050

REACTIONS (2)
  - Abortion spontaneous [Unknown]
  - Maternal exposure via partner during pregnancy [Unknown]
